APPROVED DRUG PRODUCT: ERYC
Active Ingredient: ERYTHROMYCIN
Strength: 250MG
Dosage Form/Route: CAPSULE, DELAYED REL PELLETS;ORAL
Application: N050536 | Product #001 | TE Code: AB
Applicant: DR REDDYS LABORATORIES SA
Approved: Approved Prior to Jan 1, 1982 | RLD: Yes | RS: Yes | Type: RX